FAERS Safety Report 9231867 (Version 1)
Quarter: 2013Q2

REPORT INFORMATION
  Report Type: Spontaneous
  Country: US (occurrence: US)
  Receive Date: 20130415
  Receipt Date: 20130415
  Transmission Date: 20140414
  Serious: No
  Sender: FDA-Public Use
  Company Number: US-PFIZER INC-2013117422

PATIENT
  Age: 64 Year
  Sex: Male
  Weight: 90.7 kg

DRUGS (5)
  1. PRISTIQ [Suspect]
     Indication: ANXIETY
     Dosage: 50 MG, 1X/DAY
     Dates: start: 201303
  2. PRISTIQ [Suspect]
     Indication: DEPRESSION
  3. BENICAR [Concomitant]
     Indication: HYPERTENSION
     Dosage: 40 MG, 1X/DAY
  4. CRESTOR [Concomitant]
     Indication: BLOOD CHOLESTEROL INCREASED
     Dosage: 20 MG, 1X/DAY
  5. ASPIRIN [Concomitant]
     Indication: CEREBROVASCULAR ACCIDENT PROPHYLAXIS
     Dosage: 325 MG, 1X/DAY

REACTIONS (1)
  - Sleep apnoea syndrome [Not Recovered/Not Resolved]
